FAERS Safety Report 4652492-0 (Version None)
Quarter: 2005Q2

REPORT INFORMATION
  Report Type: 
  Country: None (occurrence: None)
  Receive Date: 20050502
  Receipt Date: 20050426
  Transmission Date: 20051028
  Serious: Yes (Other)
  Sender: FDA-Public Use
  Company Number: 004705

PATIENT
  Sex: Female

DRUGS (10)
  1. MEDROXYPROGESTERONE ACETATE [Suspect]
     Dosage: ORAL
     Route: 048
  2. ESTRADIOL [Suspect]
     Dosage: ORAL
     Route: 048
  3. PREMPRO [Suspect]
  4. PROVERA [Suspect]
     Dosage: ORAL
     Route: 048
  5. PREMPRO [Suspect]
  6. ESTRACE [Suspect]
     Dosage: ORAL
     Route: 048
  7. PREMARIN [Suspect]
     Dosage: ORAL
     Route: 048
  8. PREMPRO [Suspect]
     Dosage: ORAL
     Route: 048
  9. ESTRATAB [Suspect]
     Dosage: ORAL
     Route: 048
  10. ESTROVIS [Suspect]

REACTIONS (1)
  - BREAST CANCER FEMALE [None]
